FAERS Safety Report 19024796 (Version 1)
Quarter: 2021Q1

REPORT INFORMATION
  Report Type: Report from Study
  Country: None (occurrence: US)
  Receive Date: 20210318
  Receipt Date: 20210318
  Transmission Date: 20210420
  Serious: Yes (Other)
  Sender: FDA-Public Use
  Company Number: US-BIOVITRUM-2020US7383

PATIENT
  Age: 73 Year
  Sex: Male

DRUGS (1)
  1. KINERET [Suspect]
     Active Substance: ANAKINRA
     Indication: NEUTROPHILIC DERMATOSIS
     Dosage: /0.67ML
     Route: 058
     Dates: start: 20190502

REACTIONS (5)
  - Off label use [Not Recovered/Not Resolved]
  - Squamous cell carcinoma of skin [Unknown]
  - Hypersensitivity [Unknown]
  - Arthritis [Unknown]
  - Syringe issue [Unknown]

NARRATIVE: CASE EVENT DATE: 20190502
